FAERS Safety Report 20601416 (Version 1)
Quarter: 2022Q1

REPORT INFORMATION
  Report Type: Spontaneous
  Country: US (occurrence: US)
  Receive Date: 20220316
  Receipt Date: 20220316
  Transmission Date: 20220424
  Serious: Yes (Hospitalization)
  Sender: FDA-Public Use
  Company Number: US-AVET LIFESCIENCES LTD-2022-AVET-000050

PATIENT
  Age: 29 Year
  Sex: Female

DRUGS (1)
  1. DOXYCYCLINE HYCLATE [Suspect]
     Active Substance: DOXYCYCLINE HYCLATE
     Indication: Lymphadenopathy

REACTIONS (5)
  - Neutropenia [Recovering/Resolving]
  - Rash [Unknown]
  - Pyrexia [Unknown]
  - Lymphadenopathy [Unknown]
  - Arthralgia [Unknown]
